FAERS Safety Report 7776388-0 (Version None)
Quarter: 2011Q3

REPORT INFORMATION
  Report Type: 
  Country: None (occurrence: None)
  Receive Date: 20110916
  Receipt Date: 20110912
  Transmission Date: 20111222
  Serious: Yes (Hospitalization)
  Sender: FDA-Public Use
  Company Number: 2011029610

PATIENT
  Age: 48 Year
  Sex: Male
  Weight: 89.8122 kg

DRUGS (12)
  1. ALBUTEROL [Concomitant]
  2. IBUPROFEN [Concomitant]
  3. LISINOPRIL [Concomitant]
  4. AMBIEN [Concomitant]
  5. HIZENTRA [Suspect]
  6. LEVAQUIN [Concomitant]
  7. HYDROCHLOROTHIAZIDE [Concomitant]
  8. HIZENTRA [Suspect]
     Indication: IMMUNODEFICIENCY
     Dosage: SEE IMAGE
     Route: 058
  9. ACYCLOVIR [Concomitant]
  10. VITAMIN B12 [Concomitant]
  11. BIAXIN [Concomitant]
  12. AMOXICILLIN [Concomitant]

REACTIONS (7)
  - FATIGUE [None]
  - VISION BLURRED [None]
  - MUSCULOSKELETAL DISORDER [None]
  - MUSCULAR WEAKNESS [None]
  - WEIGHT DECREASED [None]
  - HYPERSOMNIA [None]
  - DISTURBANCE IN ATTENTION [None]
